FAERS Safety Report 13226727 (Version 2)
Quarter: 2017Q1

REPORT INFORMATION
  Report Type: Spontaneous
  Country: US (occurrence: US)
  Receive Date: 20170213
  Receipt Date: 20170222
  Transmission Date: 20170428
  Serious: Yes (Other)
  Sender: FDA-Public Use
  Company Number: US-JNJFOC-20170206148

PATIENT
  Sex: Male
  Weight: 83.46 kg

DRUGS (7)
  1. DURAGESIC [Suspect]
     Active Substance: FENTANYL
     Indication: SPINAL FUSION SURGERY
     Route: 062
     Dates: start: 1999
  2. SYNTHROID [Concomitant]
     Active Substance: LEVOTHYROXINE SODIUM
     Indication: THYROID DISORDER
     Route: 065
  3. DURAGESIC [Suspect]
     Active Substance: FENTANYL
     Indication: SPINAL FUSION SURGERY
     Route: 062
  4. DURAGESIC [Suspect]
     Active Substance: FENTANYL
     Indication: SPINAL FUSION SURGERY
     Route: 062
  5. PERCOCET [Concomitant]
     Active Substance: ACETAMINOPHEN\OXYCODONE HYDROCHLORIDE
     Indication: BREAKTHROUGH PAIN
     Route: 065
  6. XANAX [Concomitant]
     Active Substance: ALPRAZOLAM
     Indication: SLEEP DISORDER
     Route: 065
  7. AMBIEN CR [Concomitant]
     Active Substance: ZOLPIDEM TARTRATE
     Route: 065

REACTIONS (3)
  - Withdrawal syndrome [Unknown]
  - Spinal fusion surgery [Unknown]
  - Drug ineffective [Unknown]
